FAERS Safety Report 7218486-6 (Version None)
Quarter: 2011Q1

REPORT INFORMATION
  Report Type: 
  Country: None (occurrence: None)
  Receive Date: 20110110
  Receipt Date: 20101230
  Transmission Date: 20110831
  Serious: Yes (Hospitalization, Disabling)
  Sender: FDA-Public Use
  Company Number: US-JNJFOC-20090104461

PATIENT
  Sex: Male
  Weight: 65.76 kg

DRUGS (11)
  1. INVEGA [Suspect]
     Indication: BIPOLAR DISORDER
     Route: 048
  2. DEPAKOTE [Concomitant]
  3. ZYRTEC [Concomitant]
  4. DEPAKOTE [Concomitant]
  5. SINGULAIR [Concomitant]
  6. INVEGA [Suspect]
     Route: 048
  7. DEPAKOTE [Concomitant]
  8. LITHIUM [Concomitant]
  9. TRAZODONE [Concomitant]
     Indication: ILL-DEFINED DISORDER
  10. CATAPRES [Concomitant]
  11. BENADRYL [Concomitant]
     Indication: ILL-DEFINED DISORDER

REACTIONS (6)
  - DRUG ADMINISTRATION ERROR [None]
  - NEUROLEPTIC MALIGNANT SYNDROME [None]
  - EXTREMITY NECROSIS [None]
  - LEG AMPUTATION [None]
  - RHABDOMYOLYSIS [None]
  - COMPARTMENT SYNDROME [None]
